FAERS Safety Report 4863144-6 (Version None)
Quarter: 2005Q4

REPORT INFORMATION
  Report Type: 
  Country: None (occurrence: None)
  Receive Date: 20051201
  Receipt Date: 20050816
  Transmission Date: 20060501
  Serious: Yes (Other)
  Sender: FDA-Public Use
  Company Number: 2005-0008433

PATIENT
  Age: 65 Year
  Sex: Male

DRUGS (18)
  1. TRUVADA [Suspect]
     Indication: HIV INFECTION
     Dosage: 1 IN 2 D, ORAL
     Route: 048
     Dates: start: 20050517
  2. KALETRA [Concomitant]
  3. LEXIVA [Concomitant]
  4. NORVIR [Concomitant]
  5. ACTONEL [Concomitant]
  6. ACYCLOVIR [Concomitant]
  7. MEPRON [Concomitant]
  8. MYSOLINE [Concomitant]
  9. OXANDRIN [Concomitant]
  10. OXYCONTIN [Concomitant]
  11. PROZAC [Concomitant]
  12. VASOTEC [Concomitant]
  13. XANAX [Concomitant]
  14. ZOFRAN [Concomitant]
  15. TESTOSTERONE [Concomitant]
  16. LOMOTIL [Concomitant]
  17. FOLIC ACID [Concomitant]
  18. DECA-DURABOLIN (NADROLONE DECANOATE) [Concomitant]

REACTIONS (5)
  - ACCIDENTAL OVERDOSE [None]
  - BLOOD PHOSPHORUS DECREASED [None]
  - GLYCOSURIA [None]
  - PROTEINURIA [None]
  - RENAL FAILURE [None]
